FAERS Safety Report 7397713-9 (Version None)
Quarter: 2011Q2

REPORT INFORMATION
  Report Type: 
  Country: None (occurrence: None)
  Receive Date: 20110406
  Receipt Date: 20110401
  Transmission Date: 20111010
  Serious: Yes (Death)
  Sender: FDA-Public Use
  Company Number: CN-PFIZER INC-2011073320

PATIENT
  Age: 50 Year

DRUGS (1)
  1. VFEND [Suspect]
     Indication: ASPERGILLOSIS
     Route: 041

REACTIONS (1)
  - DISEASE PROGRESSION [None]
